FAERS Safety Report 14095726 (Version 1)
Quarter: 2017Q4

REPORT INFORMATION
  Report Type: Spontaneous
  Country: IT (occurrence: IT)
  Receive Date: 20171016
  Receipt Date: 20171016
  Transmission Date: 20180321
  Serious: Yes (Death)
  Sender: FDA-Public Use
  Company Number: IT-MYLANLABS-2017M1063855

PATIENT
  Age: 32 Month
  Weight: 10 kg

DRUGS (1)
  1. METHADONE [Suspect]
     Active Substance: METHADONE HYDROCHLORIDE
     Indication: SEDATION
     Route: 065

REACTIONS (2)
  - Toxicity to various agents [Fatal]
  - Homicide [Fatal]
